FAERS Safety Report 5935449-9 (Version None)
Quarter: 2008Q4

REPORT INFORMATION
  Report Type: 
  Country: None (occurrence: None)
  Receive Date: 20081028
  Receipt Date: 20081017
  Transmission Date: 20090506
  Serious: Yes (Hospitalization)
  Sender: FDA-Public Use
  Company Number: 2008BI028079

PATIENT
  Age: 52 Year
  Sex: Female
  Weight: 49.4421 kg

DRUGS (3)
  1. TYSABRI [Suspect]
     Indication: MULTIPLE SCLEROSIS
     Dosage: 300 MG; QM; IV
     Route: 042
     Dates: start: 20061101
  2. COD MEDS [Concomitant]
  3. PREV MEDS [Concomitant]

REACTIONS (7)
  - CONDITION AGGRAVATED [None]
  - CRYING [None]
  - DEPRESSION [None]
  - HEPATIC ENZYME INCREASED [None]
  - INCORRECT DOSE ADMINISTERED [None]
  - INSOMNIA [None]
  - SUICIDE ATTEMPT [None]
